FAERS Safety Report 21475124 (Version 4)
Quarter: 2023Q1

REPORT INFORMATION
  Report Type: Spontaneous
  Country: US (occurrence: US)
  Receive Date: 20221019
  Receipt Date: 20230315
  Transmission Date: 20230417
  Serious: Yes (Other)
  Sender: FDA-Public Use
  Company Number: US-BRISTOL-MYERS SQUIBB COMPANY-2022-121563

PATIENT
  Age: 79 Year
  Sex: Female

DRUGS (1)
  1. POMALYST [Suspect]
     Active Substance: POMALIDOMIDE
     Indication: Osteoporosis
     Dosage: TAKE 1 CAPSULE BY MOUTH EVERY DAY FOR 21 DAYS AND 7 DAYS OF
     Route: 048
     Dates: start: 20220804

REACTIONS (13)
  - Asthenia [Unknown]
  - Neuropathy peripheral [Not Recovered/Not Resolved]
  - Arthritis [Unknown]
  - Depression [Unknown]
  - Nocturia [Unknown]
  - Insomnia [Unknown]
  - Neck mass [Unknown]
  - Nasopharyngitis [Unknown]
  - Foot deformity [Unknown]
  - Osteopenia [Not Recovered/Not Resolved]
  - Gingival pain [Not Recovered/Not Resolved]
  - Gait disturbance [Not Recovered/Not Resolved]
  - Off label use [Unknown]
